FAERS Safety Report 7531492-7 (Version None)
Quarter: 2011Q2

REPORT INFORMATION
  Report Type: 
  Country: None (occurrence: None)
  Receive Date: 20110608
  Receipt Date: 20110511
  Transmission Date: 20111010
  Serious: Yes (Hospitalization)
  Sender: FDA-Public Use
  Company Number: NO-SANOFI-AVENTIS-2011SA025912

PATIENT
  Age: 67 Year
  Sex: Male
  Weight: 106 kg

DRUGS (5)
  1. ENOXAPARIN SODIUM [Concomitant]
  2. IRBESARTAN AND HYDROCHLOROTHIAZIDE [Concomitant]
     Dates: end: 20110418
  3. CABAZITAXEL [Suspect]
     Route: 042
     Dates: start: 20110331, end: 20110331
  4. PREDNISOLONE [Suspect]
     Indication: PROSTATE CANCER
     Route: 048
     Dates: start: 20080101
  5. CABAZITAXEL [Suspect]
     Indication: PROSTATE CANCER
     Route: 042
     Dates: start: 20110127, end: 20110127

REACTIONS (2)
  - DUODENAL ULCER HAEMORRHAGE [None]
  - HAEMORRHAGIC ANAEMIA [None]
